FAERS Safety Report 8151952-8 (Version None)
Quarter: 2012Q1

REPORT INFORMATION
  Report Type: 
  Country: None (occurrence: None)
  Receive Date: 20120221
  Receipt Date: 20120215
  Transmission Date: 20120608
  Serious: No
  Sender: FDA-Public Use
  Company Number: US-PFIZER INC-2012040886

PATIENT
  Sex: Female

DRUGS (5)
  1. VENLAFAXINE HCL [Suspect]
     Dosage: UNK
  2. SELENIUM [Concomitant]
     Dosage: UNK
  3. CALCIUM [Concomitant]
     Dosage: UNK
  4. IRON [Concomitant]
     Dosage: UNK
  5. VITAMIN D [Concomitant]
     Dosage: UNK

REACTIONS (2)
  - DISTURBANCE IN ATTENTION [None]
  - INSOMNIA [None]
